FAERS Safety Report 5375651-0 (Version None)
Quarter: 2007Q2

REPORT INFORMATION
  Report Type: 
  Country: None (occurrence: None)
  Receive Date: 20070628
  Receipt Date: 20070613
  Transmission Date: 20071010
  Serious: Yes (Other)
  Sender: FDA-Public Use
  Company Number: 07-001324

PATIENT
  Age: 40 Year
  Sex: Female

DRUGS (2)
  1. ERYC [Suspect]
     Indication: RESPIRATORY TRACT INFECTION
     Dosage: 2 GRAM QD; ORAL
     Route: 048
  2. THEOPHYLLINE [Suspect]
     Indication: ASTHMA
     Dosage: ORAL
     Route: 048

REACTIONS (2)
  - DRUG CLEARANCE DECREASED [None]
  - DRUG INTERACTION POTENTIATION [None]
